FAERS Safety Report 7075291-1 (Version None)
Quarter: 2010Q4

REPORT INFORMATION
  Report Type: 
  Country: None (occurrence: None)
  Receive Date: 20101030
  Receipt Date: 20100831
  Transmission Date: 20110411
  Serious: No
  Sender: FDA-Public Use
  Company Number: US-WYE-H17124310

PATIENT
  Age: 26 Year
  Sex: Female
  Weight: 108.96 kg

DRUGS (1)
  1. ADVIL PM [Suspect]
     Indication: TOOTHACHE
     Route: 048
     Dates: start: 20100801

REACTIONS (2)
  - DRUG EFFECT DECREASED [None]
  - OVERDOSE [None]
